FAERS Safety Report 12283355 (Version 7)
Quarter: 2017Q1

REPORT INFORMATION
  Report Type: Report from Study
  Country: CA (occurrence: CA)
  Receive Date: 20160419
  Receipt Date: 20170130
  Transmission Date: 20170428
  Serious: Yes (Other)
  Sender: FDA-Public Use
  Company Number: CA-TAKEDA-2016TUS006245

PATIENT
  Age: 31 Year
  Sex: Male

DRUGS (4)
  1. MORPHINE [Concomitant]
     Active Substance: MORPHINE
     Indication: GASTROINTESTINAL DISORDER
     Dosage: UNK
  2. VEDOLIZUMAB [Suspect]
     Active Substance: VEDOLIZUMAB
     Indication: COLITIS ULCERATIVE
     Dosage: 300 MG, UNK
     Route: 042
     Dates: start: 20160323
  3. IRON SUCROSE [Suspect]
     Active Substance: IRON SUCROSE
     Indication: PRODUCT USED FOR UNKNOWN INDICATION
     Dosage: UNK
     Route: 048
  4. PREDNISONE. [Concomitant]
     Active Substance: PREDNISONE
     Indication: INFLAMMATION
     Dosage: 35 MG, UNK

REACTIONS (10)
  - Haemoglobin decreased [Unknown]
  - Sinusitis [Not Recovered/Not Resolved]
  - Dizziness [Unknown]
  - Influenza [Unknown]
  - Bronchitis [Not Recovered/Not Resolved]
  - Lung infection [Unknown]
  - Typical aura without headache [Unknown]
  - Irritable bowel syndrome [Unknown]
  - Nasopharyngitis [Not Recovered/Not Resolved]
  - Colitis ulcerative [Unknown]

NARRATIVE: CASE EVENT DATE: 2016
